FAERS Safety Report 20571439 (Version 1)
Quarter: 2022Q1

REPORT INFORMATION
  Report Type: Spontaneous
  Country: US (occurrence: None)
  Receive Date: 20220309
  Receipt Date: 20220309
  Transmission Date: 20220423
  Serious: No
  Sender: FDA-Public Use
  Company Number: 2022A080237

PATIENT
  Sex: Female
  Weight: 98 kg

DRUGS (2)
  1. PULMICORT FLEXHALER [Suspect]
     Active Substance: BUDESONIDE
     Indication: Asthma
     Route: 055
  2. BUDESONIDE [Suspect]
     Active Substance: BUDESONIDE
     Indication: Asthma
     Route: 055

REACTIONS (2)
  - Weight increased [Unknown]
  - Insurance issue [Unknown]
